FAERS Safety Report 24421719 (Version 1)
Quarter: 2024Q4

REPORT INFORMATION
  Report Type: Report from Study
  Country: US (occurrence: US)
  Receive Date: 20241010
  Receipt Date: 20241010
  Transmission Date: 20250115
  Serious: Yes (Other)
  Sender: PAREXEL
  Company Number: US-STEMLINE THERAPEUTICS B.V.-2024-STML-US005331

PATIENT

DRUGS (2)
  1. ORSERDU [Suspect]
     Active Substance: ELACESTRANT
     Indication: Breast cancer
     Dosage: 258 MG, DAILY
     Route: 048
     Dates: start: 20240809, end: 20241002
  2. ORSERDU [Suspect]
     Active Substance: ELACESTRANT
     Dosage: 345 MG
     Route: 065
     Dates: start: 20241002

REACTIONS (2)
  - Fungal infection [Unknown]
  - Tumour marker increased [Unknown]

NARRATIVE: CASE EVENT DATE: 20241002
